FAERS Safety Report 9158363 (Version 2)
Quarter: 2013Q1

REPORT INFORMATION
  Report Type: Spontaneous
  Country: FR (occurrence: FR)
  Receive Date: 20130312
  Receipt Date: 20130326
  Transmission Date: 20140127
  Serious: Yes (Other)
  Sender: FDA-Public Use
  Company Number: FR-JNJFOC-20121210101

PATIENT
  Sex: Male

DRUGS (9)
  1. XARELTO [Suspect]
     Indication: THROMBOPHLEBITIS SUPERFICIAL
     Route: 048
     Dates: start: 201211, end: 20121205
  2. XARELTO [Suspect]
     Indication: THROMBOPHLEBITIS SUPERFICIAL
     Route: 048
     Dates: start: 20121018, end: 20121205
  3. XARELTO [Suspect]
     Indication: DEEP VEIN THROMBOSIS
     Route: 048
     Dates: start: 20121018, end: 20121205
  4. XARELTO [Suspect]
     Indication: DEEP VEIN THROMBOSIS
     Route: 048
     Dates: start: 201211, end: 20121205
  5. XARELTO [Suspect]
     Indication: THROMBOSIS
     Route: 048
     Dates: start: 201211, end: 20121205
  6. XARELTO [Suspect]
     Indication: THROMBOSIS
     Route: 048
     Dates: start: 20121018, end: 20121205
  7. PRETERAX [Concomitant]
     Route: 065
  8. DIACERHEIN [Concomitant]
     Route: 065
  9. PARACETAMOL [Concomitant]
     Route: 065

REACTIONS (2)
  - Central nervous system lesion [Unknown]
  - Eye haemorrhage [Recovered/Resolved with Sequelae]
